FAERS Safety Report 16683254 (Version 2)
Quarter: 2019Q3

REPORT INFORMATION
  Report Type: Spontaneous
  Country: CN (occurrence: CN)
  Receive Date: 20190808
  Receipt Date: 20190830
  Transmission Date: 20191004
  Serious: Yes (Hospitalization, Other)
  Sender: FDA-Public Use
  Company Number: CN-ASTRAZENECA-2019SF12458

PATIENT
  Age: 956 Month
  Sex: Female
  Weight: 55 kg

DRUGS (2)
  1. TAGRISSO [Suspect]
     Active Substance: OSIMERTINIB
     Route: 048
  2. IRESSA [Suspect]
     Active Substance: GEFITINIB
     Indication: NON-SMALL CELL LUNG CANCER
     Route: 048

REACTIONS (13)
  - Oral disorder [Unknown]
  - Drug resistance [Unknown]
  - Metastases to central nervous system [Unknown]
  - Asthma [Not Recovered/Not Resolved]
  - Dyspnoea [Unknown]
  - Nerve compression [Unknown]
  - Drooling [Unknown]
  - Musculoskeletal discomfort [Unknown]
  - Back pain [Unknown]
  - Chest discomfort [Not Recovered/Not Resolved]
  - Hydrothorax [Unknown]
  - Peripheral swelling [Recovered/Resolved]
  - Malignant neoplasm progression [Unknown]

NARRATIVE: CASE EVENT DATE: 201904
